FAERS Safety Report 5545410-4 (Version None)
Quarter: 2007Q4

REPORT INFORMATION
  Report Type: 
  Country: None (occurrence: None)
  Receive Date: 20071211
  Receipt Date: 20071201
  Transmission Date: 20080405
  Serious: No
  Sender: FDA-Public Use
  Company Number: FR-ELI_LILLY_AND_COMPANY-FR200712000508

PATIENT
  Age: 60 Year
  Sex: Male

DRUGS (3)
  1. OLANZAPINE [Suspect]
     Dosage: 5 MG, UNK
  2. TRIMEPRAZINE TAB [Concomitant]
  3. IMOVANE [Concomitant]

REACTIONS (2)
  - LEUKOPENIA [None]
  - THROMBOCYTOPENIA [None]
